FAERS Safety Report 17083761 (Version 1)
Quarter: 2019Q4

REPORT INFORMATION
  Report Type: Report from Study
  Country: DE (occurrence: DE)
  Receive Date: 20191127
  Receipt Date: 20191127
  Transmission Date: 20200122
  Serious: Yes (Other)
  Sender: FDA-Public Use
  Company Number: DE-UCBSA-2019049090

PATIENT

DRUGS (1)
  1. BRIVARACETAM [Suspect]
     Active Substance: BRIVARACETAM
     Indication: EPILEPSY
     Dosage: UNK

REACTIONS (14)
  - Psychotic disorder [Unknown]
  - Panic attack [Unknown]
  - Headache [Unknown]
  - Weight increased [Unknown]
  - Fatigue [Unknown]
  - Drug ineffective [Unknown]
  - Sleep disorder [Unknown]
  - Hallucination [Unknown]
  - Seizure [Unknown]
  - Decreased appetite [Unknown]
  - Aggression [Unknown]
  - Depression [Unknown]
  - Dizziness [Unknown]
  - Adverse event [Unknown]
